FAERS Safety Report 9687494 (Version 1)
Quarter: 2013Q4

REPORT INFORMATION
  Report Type: Spontaneous
  Country: IT (occurrence: IT)
  Receive Date: 20131114
  Receipt Date: 20131114
  Transmission Date: 20140711
  Serious: Yes (Hospitalization)
  Sender: FDA-Public Use
  Company Number: IT-BRISTOL-MYERS SQUIBB COMPANY-19803782

PATIENT
  Age: 50 Year
  Sex: Female

DRUGS (7)
  1. METFORMIN HCL [Suspect]
     Indication: SUICIDE ATTEMPT
     Route: 048
     Dates: start: 20130615, end: 20130615
  2. IBUPROFEN [Suspect]
     Indication: SUICIDE ATTEMPT
     Route: 048
     Dates: start: 20130615, end: 20130615
  3. DEPAKIN [Suspect]
     Indication: SUICIDE ATTEMPT
     Route: 048
     Dates: start: 20130615, end: 20130615
  4. TACHIPIRINA [Suspect]
     Indication: SUICIDE ATTEMPT
     Route: 048
     Dates: start: 20130615, end: 20130615
  5. MOMENT [Suspect]
     Indication: SUICIDE ATTEMPT
     Route: 048
     Dates: start: 20130615, end: 20130615
  6. ENANTYUM [Suspect]
     Indication: SUICIDE ATTEMPT
     Dosage: TABLET
     Route: 048
     Dates: start: 20130615, end: 20130615
  7. ZERINOL [Suspect]
     Indication: SUICIDE ATTEMPT
     Dosage: COATED TABLET
     Route: 048
     Dates: start: 20130615, end: 20130615

REACTIONS (3)
  - Suicide attempt [Unknown]
  - Sopor [Unknown]
  - Aphasia [Unknown]
